FAERS Safety Report 4507748-9 (Version None)
Quarter: 2004Q4

REPORT INFORMATION
  Report Type: 
  Country: None (occurrence: None)
  Receive Date: 20041123
  Receipt Date: 20041028
  Transmission Date: 20050328
  Serious: Yes (Death)
  Sender: FDA-Public Use
  Company Number: 200418377US

PATIENT
  Age: 81 Year
  Sex: Female
  Weight: 70.8 kg

DRUGS (5)
  1. LOVENOX [Suspect]
     Indication: ACUTE MYOCARDIAL INFARCTION
     Route: 058
     Dates: start: 20041014, end: 20041016
  2. TOPROL-XL [Concomitant]
     Route: 048
     Dates: end: 20041016
  3. LIPITOR [Concomitant]
     Route: 048
     Dates: end: 20041016
  4. DIGOXIN [Concomitant]
     Route: 048
     Dates: end: 20041016
  5. PREDNISONE [Concomitant]
     Dosage: DOSE: UNK
     Dates: end: 20041016

REACTIONS (13)
  - ABDOMINAL PAIN [None]
  - ACTIVATED PARTIAL THROMBOPLASTIN TIME PROLONGED [None]
  - HAEMATOCRIT DECREASED [None]
  - HAEMATOMA [None]
  - HAEMODYNAMIC INSTABILITY [None]
  - HAEMOGLOBIN DECREASED [None]
  - HYPOTENSION [None]
  - INTERNATIONAL NORMALISED RATIO DECREASED [None]
  - PLATELET COUNT DECREASED [None]
  - RECTAL HAEMORRHAGE [None]
  - RED BLOOD CELL COUNT DECREASED [None]
  - RENAL FAILURE [None]
  - SHOCK HAEMORRHAGIC [None]
